FAERS Safety Report 4588376-6 (Version None)
Quarter: 2005Q1

REPORT INFORMATION
  Report Type: 
  Country: None (occurrence: None)
  Receive Date: 20050216
  Receipt Date: 20050216
  Transmission Date: 20050727
  Serious: No
  Sender: FDA-Public Use
  Company Number: None

PATIENT
  Age: 79 Year
  Sex: Male

DRUGS (1)
  1. LEXAPRO [Suspect]
     Indication: MEMORY IMPAIRMENT
     Dosage: PER OREM

REACTIONS (2)
  - ABNORMAL BEHAVIOUR [None]
  - GAMBLING [None]
